FAERS Safety Report 7518040-2 (Version None)
Quarter: 2011Q2

REPORT INFORMATION
  Report Type: 
  Country: None (occurrence: None)
  Receive Date: 20110602
  Receipt Date: 20110526
  Transmission Date: 20111010
  Serious: Yes (Other)
  Sender: FDA-Public Use
  Company Number: US-JNJFOC-20110506071

PATIENT
  Age: 25 Year
  Sex: Female

DRUGS (2)
  1. ORAL CONTRACEPTIVE [Concomitant]
     Route: 065
  2. NUCYNTA [Suspect]
     Indication: PRODUCT USED FOR UNKNOWN INDICATION
     Route: 048
     Dates: start: 20110509, end: 20110510

REACTIONS (2)
  - SWOLLEN TONGUE [None]
  - SWELLING FACE [None]
